FAERS Safety Report 16394058 (Version 1)
Quarter: 2019Q2

REPORT INFORMATION
  Report Type: Spontaneous
  Country: US (occurrence: US)
  Receive Date: 20190605
  Receipt Date: 20190605
  Transmission Date: 20190711
  Serious: Yes (Other)
  Sender: FDA-Public Use
  Company Number: US-JNJFOC-20190539969

PATIENT
  Age: 36 Year
  Sex: Female

DRUGS (1)
  1. XARELTO [Suspect]
     Active Substance: RIVAROXABAN
     Indication: THROMBOSIS
     Route: 048
     Dates: start: 20190507

REACTIONS (8)
  - Muscular weakness [Unknown]
  - Musculoskeletal stiffness [Not Recovered/Not Resolved]
  - Headache [Recovering/Resolving]
  - Arthropathy [Unknown]
  - Arthralgia [Unknown]
  - Pain [Recovered/Resolved]
  - Paralysis [Not Recovered/Not Resolved]
  - Dyskinesia [Unknown]

NARRATIVE: CASE EVENT DATE: 201905
